FAERS Safety Report 5485461-1 (Version None)
Quarter: 2007Q4

REPORT INFORMATION
  Report Type: 
  Country: None (occurrence: None)
  Receive Date: 20071010
  Receipt Date: 20071010
  Transmission Date: 20080405
  Serious: Yes (Other)
  Sender: FDA-Public Use
  Company Number: None

PATIENT
  Age: 84 Year
  Sex: Male
  Weight: 73.73 kg

DRUGS (10)
  1. PROTONIX IV [Suspect]
     Indication: GASTROINTESTINAL HAEMORRHAGE
     Dosage: 40 MG Q24 HRS  IV  (ONE DOSE)
     Route: 042
     Dates: start: 20070913, end: 20070913
  2. UNASYN [Concomitant]
  3. SYNTHROID [Concomitant]
  4. LASIX [Concomitant]
  5. NS [Concomitant]
  6. FLOMAX [Concomitant]
  7. POTASSIUM CHLORIDE [Concomitant]
  8. PAROXETINE [Concomitant]
  9. FRESH FROZEN PLASMA [Concomitant]
  10. RED BLOOD CELLS [Concomitant]

REACTIONS (10)
  - COGWHEEL RIGIDITY [None]
  - CONFUSIONAL STATE [None]
  - DRY MOUTH [None]
  - DYSARTHRIA [None]
  - MENTAL STATUS CHANGES [None]
  - MUSCLE RIGIDITY [None]
  - PARKINSONIAN REST TREMOR [None]
  - RESTLESSNESS [None]
  - TONGUE DISORDER [None]
  - TREMOR [None]
